FAERS Safety Report 8167778-5 (Version None)
Quarter: 2012Q1

REPORT INFORMATION
  Report Type: 
  Country: None (occurrence: None)
  Receive Date: 20120227
  Receipt Date: 20120216
  Transmission Date: 20120608
  Serious: Yes (Death)
  Sender: FDA-Public Use
  Company Number: FR-JNJFOC-20111004802

PATIENT
  Sex: Male
  Weight: 71 kg

DRUGS (12)
  1. ZYTIGA [Suspect]
     Indication: PROSTATE CANCER
     Route: 048
     Dates: start: 20110802, end: 20110816
  2. PREDNISONE [Suspect]
     Indication: PROSTATE CANCER
     Route: 048
  3. ZYTIGA [Suspect]
     Route: 048
  4. PLAVIX [Concomitant]
     Route: 065
  5. AN UNKNOWN MEDICATION [Concomitant]
     Route: 065
  6. ACETAMINOPHEN [Concomitant]
     Route: 065
  7. ZOLADEX [Concomitant]
     Route: 065
  8. ALDACTONE [Concomitant]
     Route: 065
  9. ATENOLOL [Concomitant]
     Route: 065
  10. ARTHROTEC [Concomitant]
     Route: 065
  11. COVERAM [Concomitant]
     Route: 065
  12. ASPIRIN [Concomitant]
     Route: 065

REACTIONS (2)
  - SEPTIC SHOCK [None]
  - SYSTEMIC INFLAMMATORY RESPONSE SYNDROME [None]
